FAERS Safety Report 17111805 (Version 2)
Quarter: 2019Q4

REPORT INFORMATION
  Report Type: Spontaneous
  Country: US (occurrence: US)
  Receive Date: 20191204
  Receipt Date: 20191209
  Transmission Date: 20200122
  Serious: No
  Sender: FDA-Public Use
  Company Number: US-SA-2019SA333557

PATIENT
  Sex: Male

DRUGS (3)
  1. DUPIXENT [Suspect]
     Active Substance: DUPILUMAB
     Indication: DERMATITIS ALLERGIC
  2. DUPIXENT [Suspect]
     Active Substance: DUPILUMAB
     Indication: DERMATITIS ATOPIC
     Dosage: 300 MG, QOW, UNDER THE SKIN
     Route: 058
     Dates: start: 20181001
  3. DUPIXENT [Suspect]
     Active Substance: DUPILUMAB
     Indication: SKIN HYPERTROPHY

REACTIONS (4)
  - Product use in unapproved indication [Unknown]
  - Product dose omission [Unknown]
  - Skin hypertrophy [Unknown]
  - Pain [Unknown]

NARRATIVE: CASE EVENT DATE: 201909
